FAERS Safety Report 21994332 (Version 1)
Quarter: 2023Q1

REPORT INFORMATION
  Report Type: Report from Study
  Country: AU (occurrence: AU)
  Receive Date: 20230215
  Receipt Date: 20230215
  Transmission Date: 20230418
  Serious: Yes (Hospitalization)
  Sender: FDA-Public Use
  Company Number: AU-MYLANLABS-2023M1015675

PATIENT
  Age: 1 Month
  Sex: Male

DRUGS (1)
  1. PROPRANOLOL [Suspect]
     Active Substance: PROPRANOLOL HYDROCHLORIDE
     Indication: Infantile haemangioma
     Dosage: 1 MILLIGRAM/KILOGRAM, QD
     Route: 048

REACTIONS (3)
  - Bradycardia [Recovered/Resolved]
  - Somnolence [Unknown]
  - Off label use [Unknown]
